FAERS Safety Report 8208101 (Version 3)
Quarter: 2020Q4

REPORT INFORMATION
  Report Type: Spontaneous
  Country: PT (occurrence: PT)
  Receive Date: 20111028
  Receipt Date: 20201223
  Transmission Date: 20210114
  Serious: Yes (Hospitalization, Other)
  Sender: FDA-Public Use
  Company Number: PT-SANOFI-AVENTIS-2011SA070177

PATIENT
  Sex: Female

DRUGS (2)
  1. GEMCITABINE HYDROCHLORIDE. [Suspect]
     Active Substance: GEMCITABINE HYDROCHLORIDE
     Indication: BONE SARCOMA
     Dosage: UNK
     Route: 065
  2. DOCETAXEL. [Suspect]
     Active Substance: DOCETAXEL
     Indication: BONE SARCOMA
     Dosage: UNK
     Route: 065

REACTIONS (6)
  - Status epilepticus [Recovered/Resolved]
  - Cytotoxic oedema [Recovered/Resolved]
  - Cerebral vasoconstriction [Recovered/Resolved]
  - Vasogenic cerebral oedema [Recovered/Resolved]
  - Posterior reversible encephalopathy syndrome [Recovered/Resolved]
  - Central nervous system lesion [Recovered/Resolved]
